FAERS Safety Report 12494213 (Version 3)
Quarter: 2017Q2

REPORT INFORMATION
  Report Type: Report from Study
  Country: JP (occurrence: JP)
  Receive Date: 20160623
  Receipt Date: 20170410
  Transmission Date: 20170830
  Serious: Yes (Life-Threatening, Hospitalization, Other)
  Sender: FDA-Public Use
  Company Number: JP-BRISTOL-MYERS SQUIBB COMPANY-BMS-2016-048306

PATIENT
  Sex: Male
  Weight: 69 kg

DRUGS (5)
  1. HEPARIN SODIUM. [Concomitant]
     Active Substance: HEPARIN SODIUM
     Indication: PROPHYLAXIS
     Dosage: 1 DF, UNK
     Route: 042
     Dates: start: 20140619, end: 20140619
  2. APIXABAN [Suspect]
     Active Substance: APIXABAN
     Indication: CEREBROVASCULAR ACCIDENT PROPHYLAXIS
     Dosage: 10 MG, UNK
     Route: 048
     Dates: end: 20140618
  3. APIXABAN [Suspect]
     Active Substance: APIXABAN
     Indication: PRODUCT USED FOR UNKNOWN INDICATION
     Dosage: 10 MG, BID
     Route: 048
     Dates: start: 20140623
  4. PENTAGIN                           /00052102/ [Concomitant]
     Active Substance: PENTAZOCINE HYDROCHLORIDE
     Indication: PROPHYLAXIS
     Dosage: 7.5 MG, QD
     Route: 042
     Dates: start: 20140619, end: 20140619
  5. CERCINE [Concomitant]
     Active Substance: DIAZEPAM
     Indication: PROPHYLAXIS
     Dosage: 5 MG, QD
     Route: 042
     Dates: start: 20140619, end: 20140619

REACTIONS (3)
  - Cardiac tamponade [Recovered/Resolved]
  - Pericarditis [Recovered/Resolved]
  - Pericardial drainage [Unknown]
